FAERS Safety Report 6213825-7 (Version None)
Quarter: 2009Q2

REPORT INFORMATION
  Report Type: 
  Country: None (occurrence: None)
  Receive Date: 20090604
  Receipt Date: 20090522
  Transmission Date: 20091009
  Serious: Yes (Other)
  Sender: FDA-Public Use
  Company Number: US-RANBAXY-2009RR-24496

PATIENT
  Age: 48 Year
  Sex: Female

DRUGS (13)
  1. ZOCOR [Suspect]
     Indication: HYPERLIPIDAEMIA
  2. LEVOTHYROXINE SODIUM [Suspect]
     Indication: HYPOTHYROIDISM
     Dosage: 0.05 MG, UNK
  3. LEVOTHYROXINE SODIUM [Suspect]
     Dosage: 0.075 MG, UNK
     Dates: start: 20060101
  4. LEVOTHYROXINE SODIUM [Suspect]
     Dosage: 0.1 MG, UNK
  5. LEVOTHYROXINE SODIUM [Suspect]
     Dosage: 0.125 MG, UNK
  6. LEVOTHYROXINE SODIUM [Suspect]
     Dosage: 0.137 MG, UNK
     Dates: start: 20060801, end: 20070101
  7. ESCITALOPRAM [Suspect]
  8. VYTORIN [Suspect]
     Indication: HYPERLIPIDAEMIA
     Dosage: 10/40 MG
  9. EZETIMIBE [Suspect]
     Indication: HYPERLIPIDAEMIA
     Dosage: UNK
     Dates: start: 20060901
  10. ROSUVASTATIN CALCIUM [Suspect]
     Indication: HYPERLIPIDAEMIA
     Dosage: 5 MG, QD
     Dates: start: 20061001, end: 20070101
  11. IODINE 131 [Concomitant]
  12. COLESEVELAM [Concomitant]
     Dosage: UNK
     Dates: start: 20060901
  13. WARFARIN SODIUM [Concomitant]
     Indication: PULMONARY EMBOLISM

REACTIONS (2)
  - DRUG INTERACTION [None]
  - MYOPATHY [None]
